FAERS Safety Report 18144541 (Version 1)
Quarter: 2020Q3

REPORT INFORMATION
  Report Type: Spontaneous
  Country: US (occurrence: US)
  Receive Date: 20200813
  Receipt Date: 20200813
  Transmission Date: 20201103
  Serious: Yes (Other)
  Sender: FDA-Public Use
  Company Number: US-SA-2020SA207492

PATIENT

DRUGS (9)
  1. BACLOFEN. [Concomitant]
     Active Substance: BACLOFEN
  2. VITAMIN D3 [Concomitant]
     Active Substance: CHOLECALCIFEROL
     Dosage: 10 (400)/ ML
  3. TURMERIC [CURCUMA LONGA] [Concomitant]
     Active Substance: HERBALS\TURMERIC
  4. MAGNESIUM [Concomitant]
     Active Substance: MAGNESIUM
     Dosage: 300 MG
  5. AUBAGIO [Suspect]
     Active Substance: TERIFLUNOMIDE
     Indication: MULTIPLE SCLEROSIS
     Dosage: 14 MG, QD
     Route: 048
     Dates: start: 2017
  6. EPINEPHRINE. [Concomitant]
     Active Substance: EPINEPHRINE
     Dosage: 0.15 MG/0.3
  7. VITAMINS NOS [Concomitant]
     Active Substance: VITAMINS
  8. ZYRTEC [Concomitant]
     Active Substance: CETIRIZINE HYDROCHLORIDE
     Dosage: 10 MG
  9. WELLBUTRIN [Concomitant]
     Active Substance: BUPROPION HYDROCHLORIDE
     Dosage: 100 MG, Q12H

REACTIONS (8)
  - Quarantine [Unknown]
  - Decreased interest [Unknown]
  - Depressed mood [Unknown]
  - COVID-19 [Unknown]
  - Depression [Unknown]
  - Fatigue [Unknown]
  - Condition aggravated [Unknown]
  - Muscle spasms [Unknown]
